FAERS Safety Report 8356338-9 (Version None)
Quarter: 2012Q2

REPORT INFORMATION
  Report Type: 
  Country: None (occurrence: None)
  Receive Date: 20120510
  Receipt Date: 20120502
  Transmission Date: 20120825
  Serious: Yes (Other)
  Sender: FDA-Public Use
  Company Number: CL-405-2012

PATIENT
  Age: 72 Year
  Sex: Female

DRUGS (3)
  1. AMIODARONE HCL [Suspect]
     Indication: TACHYARRHYTHMIA
  2. AMIODARONE HCL [Suspect]
     Indication: ATRIAL TACHYCARDIA
  3. ATORVASTATIN CALCIUM [Concomitant]

REACTIONS (4)
  - ATAXIA [None]
  - MYOPATHY [None]
  - DYSPHAGIA [None]
  - NEUROPATHY PERIPHERAL [None]
